FAERS Safety Report 19229246 (Version 1)
Quarter: 2021Q2

REPORT INFORMATION
  Report Type: Spontaneous
  Country: US (occurrence: US)
  Receive Date: 20210506
  Receipt Date: 20210506
  Transmission Date: 20210717
  Serious: No
  Sender: FDA-Public Use
  Company Number: US-SA-2021SA148685

PATIENT
  Sex: Female

DRUGS (12)
  1. DOXYCYCLINE MONOHYDRATE [Concomitant]
     Active Substance: DOXYCYCLINE
  2. ZYRTEC?D [Concomitant]
     Active Substance: CETIRIZINE HYDROCHLORIDE\PSEUDOEPHEDRINE HYDROCHLORIDE
  3. CALCIPOTRIENE. [Concomitant]
     Active Substance: CALCIPOTRIENE
  4. MONTELUKAST SODIUM. [Concomitant]
     Active Substance: MONTELUKAST SODIUM
  5. HYDROCORTISONE. [Concomitant]
     Active Substance: HYDROCORTISONE
  6. HYDROXYZINE [Concomitant]
     Active Substance: HYDROXYZINE HYDROCHLORIDE
  7. ACUICYN [Concomitant]
  8. PROBIOTICS NOS [Concomitant]
     Active Substance: PROBIOTICS NOS
  9. DUPIXENT [Suspect]
     Active Substance: DUPILUMAB
     Indication: PSORIASIS
     Dosage: 300 MG, QOW
     Route: 058
     Dates: start: 20180526
  10. TACROLIMUS. [Concomitant]
     Active Substance: TACROLIMUS
  11. ALLEGRA ALLERGY [Concomitant]
     Active Substance: FEXOFENADINE HYDROCHLORIDE
  12. DIPHENHYDRAMINE. [Concomitant]
     Active Substance: DIPHENHYDRAMINE

REACTIONS (1)
  - Drug ineffective for unapproved indication [Unknown]
